FAERS Safety Report 8249729-8 (Version None)
Quarter: 2012Q2

REPORT INFORMATION
  Report Type: 
  Country: None (occurrence: None)
  Receive Date: 20120402
  Receipt Date: 20120323
  Transmission Date: 20120825
  Serious: Yes (Life-Threatening, Hospitalization)
  Sender: FDA-Public Use
  Company Number: JP-SANOFI-AVENTIS-2011SA077427

PATIENT
  Age: 60 Year
  Sex: Male
  Weight: 43.3 kg

DRUGS (9)
  1. CRESTOR [Concomitant]
     Indication: HYPERLIPIDAEMIA
     Route: 048
     Dates: start: 20110308
  2. ASPIRIN [Concomitant]
     Indication: THROMBOSIS
     Route: 048
     Dates: start: 20110210
  3. OMEPRAZOLE [Concomitant]
     Route: 048
     Dates: start: 20110210
  4. LOSARTAN POTASSIUM [Concomitant]
     Indication: HYPERTENSION
     Route: 048
     Dates: start: 20110311
  5. CONIEL [Concomitant]
     Indication: HYPERTENSION
     Route: 048
     Dates: start: 20110319
  6. ISOSORBIDE MONONITRATE [Concomitant]
     Route: 048
     Dates: start: 20110308
  7. PLAVIX [Suspect]
     Indication: THROMBOSIS
     Route: 048
     Dates: start: 20110210, end: 20110721
  8. MAGNESIUM SULFATE [Concomitant]
     Indication: CONSTIPATION
     Route: 048
     Dates: start: 20110210
  9. EPADEL [Concomitant]
     Indication: HYPERLIPIDAEMIA
     Dosage: 1 PACKAGEX2 TIMES
     Route: 048
     Dates: start: 20110526

REACTIONS (1)
  - INTERSTITIAL LUNG DISEASE [None]
